FAERS Safety Report 4689630-X (Version None)
Quarter: 2005Q2

REPORT INFORMATION
  Report Type: 
  Country: None (occurrence: None)
  Receive Date: 20050608
  Receipt Date: 20050131
  Transmission Date: 20051028
  Serious: No
  Sender: FDA-Public Use
  Company Number: 2005-BP-01497BP

PATIENT
  Sex: Male

DRUGS (3)
  1. SPIRIVA [Suspect]
     Indication: CHRONIC OBSTRUCTIVE PULMONARY DISEASE
     Dosage: 18 MCG (18 MCG) , IH
     Route: 055
     Dates: start: 20040601
  2. SPIRIVA [Suspect]
  3. THEO-24 [Concomitant]

REACTIONS (2)
  - ASTHENIA [None]
  - DYSPNOEA [None]
